FAERS Safety Report 7183933-5 (Version None)
Quarter: 2010Q4

REPORT INFORMATION
  Report Type: 
  Country: None (occurrence: None)
  Receive Date: 20101222
  Receipt Date: 20101221
  Transmission Date: 20110411
  Serious: Yes (Life-Threatening, Other)
  Sender: FDA-Public Use
  Company Number: IT-BRISTOL-MYERS SQUIBB COMPANY-15414923

PATIENT
  Age: 32 Year
  Sex: Female

DRUGS (5)
  1. ABILIFY [Suspect]
     Indication: BIPOLAR DISORDER
     Dosage: DOSE REDUCED TO 2.5MG/D  INTERRUPTED ON 6NOV10
     Route: 048
     Dates: start: 20101105
  2. LITHIUM [Suspect]
     Indication: BIPOLAR DISORDER
  3. CITALOPRAM [Suspect]
     Indication: BIPOLAR DISORDER
  4. ESCITALOPRAM [Concomitant]
     Dosage: 24 DAYS
     Route: 048
     Dates: start: 20101105
  5. CARBOLITHIUM [Concomitant]
     Dosage: CARBOLITHIUM 150MG ORAL CAPS
     Route: 048
     Dates: start: 20090925

REACTIONS (2)
  - ROAD TRAFFIC ACCIDENT [None]
  - SOMNOLENCE [None]
